FAERS Safety Report 21780067 (Version 1)
Quarter: 2022Q4

REPORT INFORMATION
  Report Type: Spontaneous
  Country: IT (occurrence: IT)
  Receive Date: 20221226
  Receipt Date: 20221226
  Transmission Date: 20230112
  Serious: Yes (Hospitalization, Other)
  Sender: FDA-Public Use
  Company Number: IT-002147023-NVSC2022IT294803

PATIENT
  Age: 56 Year
  Sex: Male

DRUGS (3)
  1. TACROLIMUS [Suspect]
     Active Substance: TACROLIMUS
     Indication: Renal transplant
     Dosage: 3 MG, QD
     Route: 065
  2. MYCOPHENOLATE MOFETIL [Concomitant]
     Active Substance: MYCOPHENOLATE MOFETIL
     Indication: Renal transplant
     Dosage: 1 G, QD
     Route: 065
  3. PREDNISONE [Concomitant]
     Active Substance: PREDNISONE
     Indication: Renal transplant
     Dosage: 5 MG, QD
     Route: 065

REACTIONS (2)
  - Retinal microangiopathy [Recovering/Resolving]
  - Myositis [Recovering/Resolving]
